FAERS Safety Report 22585571 (Version 2)
Quarter: 2024Q3

REPORT INFORMATION
  Report Type: Spontaneous
  Country: CA (occurrence: CA)
  Receive Date: 20230610
  Receipt Date: 20240722
  Transmission Date: 20241016
  Serious: No
  Sender: CELLTRION
  Company Number: CA-CELLTRION INC.-2022CA022382

PATIENT

DRUGS (8)
  1. TRUXIMA [Suspect]
     Active Substance: RITUXIMAB-ABBS
     Indication: Glomerulonephritis minimal lesion
     Dosage: 1000 MILLIGRAM
     Route: 042
     Dates: start: 20221220
  2. TRUXIMA [Suspect]
     Active Substance: RITUXIMAB-ABBS
     Dosage: 1000 MILLIGRAM (INFUSION#1)
     Route: 042
     Dates: start: 20221220
  3. TRUXIMA [Suspect]
     Active Substance: RITUXIMAB-ABBS
     Dosage: 1000 MG (INFUSION#2)
     Route: 042
     Dates: start: 20221220
  4. TRUXIMA [Suspect]
     Active Substance: RITUXIMAB-ABBS
     Dosage: UNK DOSE, HE RECEIVED TWO IV INFUSIONS THAT WERE TWO WEEKS APART AND REPORTS HIS NEXT INFUSION IS SC
  5. TRUXIMA [Suspect]
     Active Substance: RITUXIMAB-ABBS
     Dosage: 1000 MG (INFUSION#5)
     Route: 042
     Dates: start: 20221220
  6. COTRIMOXAZOLE [Concomitant]
     Active Substance: SULFAMETHOXAZOLE\TRIMETHOPRIM
     Indication: Prophylaxis
     Dosage: PROPHYLACTIC DOSE
  7. DIPHENHYDRAMINE [Concomitant]
     Active Substance: DIPHENHYDRAMINE
     Indication: Premedication
     Dosage: 50 MG PO
     Route: 048
  8. METHYLPREDNISOLONE [Concomitant]
     Active Substance: METHYLPREDNISOLONE
     Indication: Premedication
     Dosage: 100MG IV
     Route: 042

REACTIONS (5)
  - Antibiotic prophylaxis [Unknown]
  - Heart rate abnormal [Unknown]
  - Diarrhoea [Recovered/Resolved]
  - Nasopharyngitis [Unknown]
  - Off label use [Unknown]

NARRATIVE: CASE EVENT DATE: 20221220
